FAERS Safety Report 4547856-X (Version None)
Quarter: 2004Q4

REPORT INFORMATION
  Report Type: 
  Country: None (occurrence: None)
  Receive Date: 20041227
  Receipt Date: 20041013
  Transmission Date: 20050328
  Serious: No
  Sender: FDA-Public Use
  Company Number: 04P-163-0277211-00

PATIENT
  Age: 33 Year
  Sex: Female
  Weight: 52.1637 kg

DRUGS (4)
  1. HUMIRA [Suspect]
     Indication: ALPHA TUMOUR NECROSIS FACTOR INCREASED
     Dosage: 40 MG, ONCE, SUBCUTANEOUS
     Route: 058
     Dates: start: 20040916, end: 20040916
  2. LEVOTHYROXINE SODIUM [Concomitant]
  3. PRENATAL [Concomitant]
  4. FISH OIL [Concomitant]

REACTIONS (3)
  - INJECTION SITE ERYTHEMA [None]
  - PARAESTHESIA [None]
  - RASH GENERALISED [None]
